FAERS Safety Report 6102198-6 (Version None)
Quarter: 2009Q1

REPORT INFORMATION
  Report Type: 
  Country: None (occurrence: None)
  Receive Date: 20090304
  Receipt Date: 20080521
  Transmission Date: 20090719
  Serious: Yes (Hospitalization)
  Sender: FDA-Public Use
  Company Number: FR-PFIZER INC-2009151243

PATIENT

DRUGS (6)
  1. IRINOTECAN HCL [Suspect]
     Indication: GASTRIC CANCER
     Dosage: 335 MG, CYCLIC
     Route: 042
     Dates: start: 20080211
  2. FLUOROURACIL [Suspect]
     Indication: GASTRIC CANCER
     Dosage: 710 MG, CYCLIC
     Route: 040
     Dates: start: 20080211
  3. FLUOROURACIL [Suspect]
     Dosage: 4450 MG, CYCLIC
     Route: 042
     Dates: start: 20080211
  4. FOLINIC ACID [Suspect]
     Indication: GASTRIC CANCER
     Dosage: 370 MG, CYCLIC
     Route: 042
     Dates: start: 20080211
  5. SOTALOL HCL [Concomitant]
     Dosage: UNK
     Route: 048
  6. KARDEGIC [Concomitant]
     Dosage: 37.5 MG, UNK
     Route: 048
     Dates: end: 20080225

REACTIONS (4)
  - DYSPNOEA [None]
  - FALL [None]
  - INJURY [None]
  - MALAISE [None]
